FAERS Safety Report 11972120 (Version 3)
Quarter: 2016Q1

REPORT INFORMATION
  Report Type: Spontaneous
  Country: JP (occurrence: JP)
  Receive Date: 20160128
  Receipt Date: 20160211
  Transmission Date: 20160526
  Serious: Yes (Hospitalization)
  Sender: FDA-Public Use
  Company Number: JP-SA-2016SA013805

PATIENT
  Age: 90 Year
  Sex: Female

DRUGS (10)
  1. URIADEC [Suspect]
     Active Substance: TOPIROXOSTAT
     Indication: HYPERURICAEMIA
     Route: 048
     Dates: start: 201506, end: 20151217
  2. URITOS [Suspect]
     Active Substance: IMIDAFENACIN
     Indication: DYSURIA
     Route: 048
     Dates: start: 201506, end: 20151217
  3. EDIROL [Suspect]
     Active Substance: ELDECALCITOL
     Indication: OSTEOPOROSIS
     Route: 048
     Dates: start: 201506, end: 20151217
  4. TRAZENTA [Suspect]
     Active Substance: LINAGLIPTIN
     Indication: DIABETES MELLITUS
     Route: 048
     Dates: start: 201506, end: 20151217
  5. NEXIUM [Concomitant]
     Active Substance: ESOMEPRAZOLE MAGNESIUM
     Route: 048
  6. AMARYL [Concomitant]
     Active Substance: GLIMEPIRIDE
     Route: 048
  7. MYSLEE [Concomitant]
     Active Substance: ZOLPIDEM TARTRATE
     Route: 048
  8. AVAPRO [Suspect]
     Active Substance: IRBESARTAN
     Indication: HYPERTENSION
     Route: 048
     Dates: start: 201506, end: 20151217
  9. BEHYD-R. A [Suspect]
     Active Substance: BENZYLHYDROCHLOROTHIAZIDE\CARBAZOCHROME\RESERPINE
     Indication: BLOOD PRESSURE MANAGEMENT
     Route: 048
     Dates: start: 201506, end: 20151217
  10. LIVALO [Concomitant]
     Active Substance: PITAVASTATIN CALCIUM
     Route: 048
     Dates: end: 20150903

REACTIONS (4)
  - Hypophagia [None]
  - Rhabdomyolysis [Recovered/Resolved]
  - Viral infection [None]
  - Tremor [None]

NARRATIVE: CASE EVENT DATE: 201512
